FAERS Safety Report 10244504 (Version 1)
Quarter: 2014Q2

REPORT INFORMATION
  Report Type: Spontaneous
  Country: US (occurrence: US)
  Receive Date: 20140618
  Receipt Date: 20140618
  Transmission Date: 20141212
  Serious: Yes (Other)
  Sender: FDA-Public Use
  Company Number: US-009507513-1406USA007357

PATIENT
  Sex: Female
  Weight: 106.12 kg

DRUGS (1)
  1. NUVARING [Suspect]
     Indication: CONTRACEPTION
     Dosage: UNK
     Route: 067
     Dates: end: 201207

REACTIONS (9)
  - Cholecystectomy [Unknown]
  - Thrombophlebitis superficial [Unknown]
  - Deep vein thrombosis [Unknown]
  - Hot flush [Unknown]
  - Otorhinolaryngological surgery [Unknown]
  - Pain in extremity [Unknown]
  - Soft tissue injury [Unknown]
  - Meniscus injury [Unknown]
  - Peripheral venous disease [Unknown]
